FAERS Safety Report 4956882-8 (Version None)
Quarter: 2006Q1

REPORT INFORMATION
  Report Type: 
  Country: None (occurrence: None)
  Receive Date: 20060323
  Receipt Date: 20060314
  Transmission Date: 20060701
  Serious: Yes (Death)
  Sender: FDA-Public Use
  Company Number: 163-20785-06020249

PATIENT
  Age: 88 Year
  Sex: Male

DRUGS (21)
  1. THALOMID [Suspect]
     Indication: MULTIPLE MYELOMA
     Dosage: 200 MG QHS ORAL
     Route: 048
     Dates: start: 20050314
  2. FLOMAX [Concomitant]
  3. ENALAPRIL MALEATE [Concomitant]
  4. K-DUR 10 [Concomitant]
  5. AMBIEN [Concomitant]
  6. TOPROL-XL [Concomitant]
  7. PLAVIX [Concomitant]
  8. PROCRIT [Concomitant]
  9. VITAMIN B12 (CYANCOBALAMIN) [Concomitant]
  10. CALCIUM (CALCIUM) [Concomitant]
  11. PROSCAR [Concomitant]
  12. ZOCOR [Concomitant]
  13. ROCALTROL [Concomitant]
  14. DIGOXIN [Concomitant]
  15. COLACE (DOCUSATE SODIUM) [Concomitant]
  16. PROTONIX [Concomitant]
  17. CIPROFLOXACIN HCL [Concomitant]
  18. MACROBID [Concomitant]
  19. ZOLOFT [Concomitant]
  20. XANAX [Concomitant]
  21. COUMADIN [Concomitant]

REACTIONS (4)
  - BENIGN PROSTATIC HYPERPLASIA [None]
  - LOCALISED INFECTION [None]
  - RENAL FAILURE [None]
  - SUDDEN DEATH [None]
